FAERS Safety Report 7384655-8 (Version None)
Quarter: 2011Q1

REPORT INFORMATION
  Report Type: 
  Country: None (occurrence: None)
  Receive Date: 20110330
  Receipt Date: 20110301
  Transmission Date: 20110831
  Serious: Yes (Other)
  Sender: FDA-Public Use
  Company Number: US-BAYER-200934798NA

PATIENT
  Sex: Female
  Weight: 113.38 kg

DRUGS (17)
  1. TRASYLOL [Suspect]
     Dosage: 100 ML, UNK
     Route: 042
  2. DILTIAZEM [Concomitant]
     Dosage: 180 MG, QD
     Route: 048
  3. PHENYLEPHRIN [Concomitant]
     Dosage: 25 CC/HR
     Route: 042
     Dates: start: 19990624
  4. NIPRIDE [Concomitant]
  5. RAMIPRIL [Concomitant]
     Dosage: 5 MG, QD
     Route: 048
  6. ALLOPURINOL [Concomitant]
  7. TRASYLOL [Suspect]
     Indication: CORONARY ARTERY BYPASS
     Dosage: 1 ML, TEST DOSE
     Route: 042
     Dates: start: 19990624
  8. ACETAMINOPHEN [Concomitant]
  9. HYDROCHLOROTHIAZIDE [Concomitant]
     Dosage: 25 MG, QD
     Route: 048
  10. TRASYLOL [Suspect]
     Dosage: 25 ML, Q1HR
     Route: 042
  11. ISODRIL [Concomitant]
     Dosage: 10 MG, TID
     Route: 048
  12. DOBUTAMINE [Concomitant]
     Dosage: 5 MCG/KG/MIN
     Route: 042
     Dates: start: 19990624
  13. PROPOFOL [Concomitant]
     Dosage: 35 MCG/KG/HR
     Route: 042
     Dates: start: 19990624
  14. PREDNISONE [Concomitant]
     Dosage: 5 MG, QD
     Route: 048
  15. ATENOLOL [Concomitant]
     Dosage: 50 MG, QD
     Route: 048
  16. PRILOSEC [Concomitant]
     Dosage: 20 MG, QD
     Route: 048
  17. COLCHICINE [Concomitant]
     Dosage: 0.6 MG, QD
     Route: 048

REACTIONS (12)
  - RENAL INJURY [None]
  - ANXIETY [None]
  - PAIN [None]
  - MULTI-ORGAN FAILURE [None]
  - INJURY [None]
  - NERVOUSNESS [None]
  - FEAR [None]
  - FEAR OF DEATH [None]
  - DEPRESSION [None]
  - RENAL FAILURE [None]
  - EMOTIONAL DISTRESS [None]
  - ANHEDONIA [None]
